FAERS Safety Report 6976605-0 (Version None)
Quarter: 2010Q3

REPORT INFORMATION
  Report Type: 
  Country: None (occurrence: None)
  Receive Date: 20100910
  Receipt Date: 20100830
  Transmission Date: 20110219
  Serious: Yes (Hospitalization, Disabling, Other)
  Sender: FDA-Public Use
  Company Number: US-PFIZER INC-2010075731

PATIENT
  Sex: Female

DRUGS (1)
  1. CHANTIX [Suspect]
     Indication: SMOKING CESSATION THERAPY
     Dosage: STARTER PACK
     Dates: start: 20080904, end: 20080916

REACTIONS (7)
  - ANXIETY [None]
  - BURNING SENSATION [None]
  - DEPRESSION [None]
  - HYPERAESTHESIA [None]
  - SENSATION OF PRESSURE [None]
  - STEVENS-JOHNSON SYNDROME [None]
  - TOXIC NEUROPATHY [None]
